FAERS Safety Report 5019475-2 (Version None)
Quarter: 2006Q2

REPORT INFORMATION
  Report Type: 
  Country: None (occurrence: None)
  Receive Date: 20060526
  Receipt Date: 20060516
  Transmission Date: 20061013
  Serious: Yes (Hospitalization)
  Sender: FDA-Public Use
  Company Number: CLOF-10246

PATIENT
  Age: 58 Year
  Sex: Female

DRUGS (3)
  1. CLOFARABINE [Suspect]
     Indication: MYELODYSPLASTIC SYNDROME
     Dosage: 85 MG DAILY PO
     Route: 048
     Dates: start: 20060504, end: 20060508
  2. TRIAMTERENE [Concomitant]
  3. COUMADIN [Concomitant]

REACTIONS (2)
  - ANKLE FRACTURE [None]
  - SYNCOPE [None]
